FAERS Safety Report 12535455 (Version 4)
Quarter: 2016Q4

REPORT INFORMATION
  Report Type: Report from Study
  Country: PL (occurrence: PL)
  Receive Date: 20160707
  Receipt Date: 20161010
  Transmission Date: 20170207
  Serious: Yes (Death, Hospitalization, Other)
  Sender: FDA-Public Use
  Company Number: PHHY2016PL091794

PATIENT
  Age: 76 Year
  Sex: Male
  Weight: 86 kg

DRUGS (12)
  1. BISOCARD [Concomitant]
     Active Substance: BISOPROLOL
     Indication: HYPERTENSION
     Dosage: 2.5 MG, QD
     Route: 048
  2. ALFUZOSTAD [Concomitant]
     Indication: PRODUCT USED FOR UNKNOWN INDICATION
     Dosage: 10 MG, QD (AT NIGHT)
     Route: 048
  3. TUSSICOM [Concomitant]
     Indication: PRODUCT USED FOR UNKNOWN INDICATION
     Dosage: UNK OT, BID (2X1)
     Route: 048
  4. AMIKACIN [Concomitant]
     Active Substance: AMIKACIN
     Indication: PRODUCT USED FOR UNKNOWN INDICATION
     Dosage: 500 MG, BID
     Route: 042
     Dates: start: 20160927
  5. NONPRES [Concomitant]
     Indication: HYPERTENSION
     Dosage: 25 MG, QD
     Route: 048
  6. MEROPENEM. [Concomitant]
     Active Substance: MEROPENEM
     Indication: PRODUCT USED FOR UNKNOWN INDICATION
     Dosage: 1 G, TID
     Route: 042
     Dates: start: 20160927
  7. BIOTUM [Concomitant]
     Indication: PRODUCT USED FOR UNKNOWN INDICATION
     Dosage: UNK
     Route: 042
     Dates: start: 20160922
  8. POLOCARD [Concomitant]
     Active Substance: ASPIRIN
     Indication: PRODUCT USED FOR UNKNOWN INDICATION
     Dosage: 75 MG, QD
     Route: 065
  9. TASIGNA [Suspect]
     Active Substance: NILOTINIB
     Indication: CHRONIC MYELOID LEUKAEMIA
     Dosage: 400 MG, BID
     Route: 048
     Dates: start: 20160622, end: 20160928
  10. ZOCOR [Concomitant]
     Active Substance: SIMVASTATIN
     Indication: PRODUCT USED FOR UNKNOWN INDICATION
     Dosage: 20 MG, QD (AT NIGHT)
     Route: 065
  11. FLUCONAZOLE. [Concomitant]
     Active Substance: FLUCONAZOLE
     Indication: PRODUCT USED FOR UNKNOWN INDICATION
     Dosage: 100 MG, QD
     Route: 042
     Dates: start: 20160927
  12. DOPAMINE [Concomitant]
     Active Substance: DOPAMINE\DOPAMINE HYDROCHLORIDE
     Indication: PRODUCT USED FOR UNKNOWN INDICATION
     Route: 042

REACTIONS (15)
  - Cough [Fatal]
  - Asthenia [Recovered/Resolved]
  - Pyrexia [Recovered/Resolved]
  - C-reactive protein increased [Unknown]
  - Dyspnoea [Fatal]
  - Back pain [Recovered/Resolved]
  - Thrombocytopenia [Not Recovered/Not Resolved]
  - Chronic myeloid leukaemia [Fatal]
  - Ventricular tachycardia [Unknown]
  - Dyspnoea exertional [Recovered/Resolved]
  - Decreased appetite [Recovered/Resolved]
  - Rhinorrhoea [Recovered/Resolved]
  - Pneumonia [Fatal]
  - Pyrexia [Fatal]
  - Staphylococcal sepsis [Fatal]

NARRATIVE: CASE EVENT DATE: 20160626
